FAERS Safety Report 4699453-3 (Version None)
Quarter: 2005Q2

REPORT INFORMATION
  Report Type: 
  Country: None (occurrence: None)
  Receive Date: 20050624
  Receipt Date: 20050614
  Transmission Date: 20051028
  Serious: Yes (Hospitalization)
  Sender: FDA-Public Use
  Company Number: BR-MERCK-0506BRA00046

PATIENT

DRUGS (4)
  1. VIOXX [Suspect]
     Route: 048
  2. RIVASTIGMINE [Suspect]
     Indication: DEMENTIA ALZHEIMER'S TYPE
     Route: 048
  3. RIVASTIGMINE [Suspect]
     Route: 048
  4. RIVASTIGMINE [Suspect]
     Route: 048

REACTIONS (3)
  - HAEMORRHAGE [None]
  - HAEMORRHAGE URINARY TRACT [None]
  - HEPATIC ENCEPHALOPATHY [None]
